FAERS Safety Report 18054047 (Version 3)
Quarter: 2022Q2

REPORT INFORMATION
  Report Type: Spontaneous
  Country: US (occurrence: US)
  Receive Date: 20200722
  Receipt Date: 20220407
  Transmission Date: 20220721
  Serious: No
  Sender: FDA-Public Use
  Company Number: US-PFIZER INC-2020278819

PATIENT
  Age: 75 Year
  Sex: Male
  Weight: 99.79 kg

DRUGS (4)
  1. VYNDAMAX [Interacting]
     Active Substance: TAFAMIDIS
     Indication: Amyloidosis senile
     Dosage: 61 MG, 1X/DAY
     Route: 048
     Dates: start: 202006
  2. COUMADIN [Interacting]
     Active Substance: WARFARIN SODIUM
     Indication: Thrombosis
     Dosage: 5 MG
  3. COUMADIN [Interacting]
     Active Substance: WARFARIN SODIUM
     Dosage: 2.5MG (1/2 TABLET) 3 DAYS A WEEK ON MON,WED,FRI + ALL OTHER DAYS 5MG DOSE
  4. DIETARY SUPPLEMENT [Interacting]
     Active Substance: DIETARY SUPPLEMENT
     Dosage: 500 MG, 2X/DAY
     Route: 048
     Dates: start: 202006

REACTIONS (6)
  - Drug interaction [Unknown]
  - Urine analysis abnormal [Unknown]
  - Night sweats [Unknown]
  - Peripheral coldness [Not Recovered/Not Resolved]
  - Product dose omission issue [Unknown]
  - Off label use [Unknown]

NARRATIVE: CASE EVENT DATE: 20200101
